FAERS Safety Report 9433905 (Version 2)
Quarter: 2013Q4

REPORT INFORMATION
  Report Type: Report from Study
  Country: US (occurrence: US)
  Receive Date: 20130801
  Receipt Date: 20131112
  Transmission Date: 20140711
  Serious: Yes (Hospitalization)
  Sender: FDA-Public Use
  Company Number: PHHO2013US001722

PATIENT
  Age: 60 Year
  Sex: Female
  Weight: 45.35 kg

DRUGS (41)
  1. AFQ056 [Suspect]
     Indication: PARKINSON^S DISEASE
     Route: 048
  2. AFQ056 [Suspect]
     Dosage: 100 MG, BID
     Route: 048
     Dates: start: 20110715
  3. CLINDAMYCIN [Suspect]
     Indication: PROPHYLAXIS
     Dosage: 600 MG, BID
     Dates: start: 20130123
  4. DOMPERIDONE [Concomitant]
     Indication: NAUSEA
     Dosage: 10 MG, QID
     Dates: start: 20110222, end: 20110804
  5. DOMPERIDONE [Concomitant]
     Dosage: 10 MG, TID
     Dates: start: 20110805
  6. SINEMET [Concomitant]
     Indication: PARKINSON^S DISEASE
     Dosage: 25/100, .5 TAB, TID
     Route: 048
     Dates: start: 20110308, end: 20110715
  7. SINEMET [Concomitant]
     Dosage: 25/100 MG, .75 TAB, QD
     Route: 048
     Dates: start: 20110308, end: 20120310
  8. SINEMET [Concomitant]
     Dosage: 25/100, .5 TAB, BID
     Route: 048
     Dates: start: 20110716, end: 20110725
  9. SINEMET [Concomitant]
     Dosage: 25/100 MG, 0.75 TAB
     Route: 048
     Dates: start: 20110619, end: 20110908
  10. SINEMET [Concomitant]
     Dosage: 25/100 MG, 0.75 TAB
     Route: 048
     Dates: start: 20110725, end: 20110728
  11. SINEMET [Concomitant]
     Dosage: 25/100 MG, 1 TAB
     Route: 048
     Dates: start: 20110729, end: 20110816
  12. SINEMET [Concomitant]
     Dosage: 25/100 MG, .75 TAB
     Route: 048
     Dates: start: 20110817, end: 20111005
  13. SINEMET [Concomitant]
     Dosage: 25/100 MG, 1 TAB
     Route: 048
     Dates: start: 20110909, end: 20120306
  14. SINEMET [Concomitant]
     Dosage: 25/100 MG, 11 AM, .5 TAB
     Route: 048
     Dates: start: 20110308, end: 20111005
  15. SINEMET [Concomitant]
     Dosage: 25/100 MG, 11 AM, .75 TAB
     Route: 048
     Dates: start: 20110610
  16. SINEMET [Concomitant]
     Dosage: 25/100 MG, 3 PM, 1 TAB
     Route: 048
     Dates: start: 20110610, end: 20120615
  17. SINEMET [Concomitant]
     Dosage: 25/100 MG, 7P, 1.25
     Route: 048
     Dates: start: 20120307, end: 20120730
  18. SINEMET [Concomitant]
     Dosage: 25/100 MG, 7 A, 1 TAB
     Route: 048
     Dates: start: 20120307, end: 20120730
  19. SINEMET [Concomitant]
     Dosage: 25/100 MG, 1.25 TAB, BID
     Route: 048
     Dates: start: 20120730
  20. SINEMET [Concomitant]
     Dosage: 25/100 MG, 5 PM, 1 TAB
     Route: 048
     Dates: start: 20120730
  21. SINEMET [Concomitant]
     Dosage: 25/100 MG, 4 PM, 1.25 TABS
     Route: 048
     Dates: start: 20120615, end: 20120730
  22. MIRAPEX [Concomitant]
     Indication: PARKINSON^S DISEASE
     Dosage: 1.5 MG, QD
     Route: 048
     Dates: start: 20110308
  23. MIRAPEX [Concomitant]
     Dosage: 0.75 MG, QD
     Route: 048
     Dates: start: 20110308
  24. MIRAPEX [Concomitant]
     Dosage: 0.375 MG, QD
     Route: 048
     Dates: start: 20120730
  25. NORVASC [Concomitant]
     Indication: RAYNAUD^S PHENOMENON
     Dosage: 5 MG, QD
     Route: 048
     Dates: start: 201103
  26. REMERON [Concomitant]
     Indication: DEPRESSION
     Dosage: 30 MG, QD
     Route: 048
     Dates: start: 20101012, end: 20111005
  27. FOSAMAX PLUS D [Concomitant]
     Indication: OSTEOPOROSIS
     Dosage: 70 MG, UNK
     Route: 048
     Dates: start: 20101115, end: 20120915
  28. MIRALAX [Concomitant]
     Indication: CONSTIPATION
     Dosage: 17 G, QD
     Route: 048
     Dates: start: 20110729
  29. COLACE [Concomitant]
     Indication: CONSTIPATION
     Dosage: 100 MG, QD
     Route: 048
     Dates: start: 20110729
  30. COLACE [Concomitant]
     Dosage: 100 MG, QID
     Dates: start: 201207
  31. MELATONIN [Concomitant]
     Indication: INSOMNIA
     Dosage: 1 MG, QHS
     Route: 048
     Dates: start: 20111005, end: 201111
  32. GAS X [Concomitant]
     Indication: FLATULENCE
     Dosage: 125 MG, QD
     Route: 048
     Dates: start: 20110816, end: 20110902
  33. SINEMET-CR [Concomitant]
     Indication: PARKINSON^S DISEASE
     Dosage: 25/100 MG, 1 TAB, QHS
     Route: 048
     Dates: start: 20111207, end: 20120107
  34. SINEMET-CR [Concomitant]
     Dosage: 25/100 MG, 0.5 TAB
     Route: 048
     Dates: start: 20120108, end: 20120615
  35. SINEMET-CR [Concomitant]
     Dosage: 25/100 MG
     Route: 048
     Dates: start: 20120715, end: 201207
  36. SINEMET-CR [Concomitant]
     Dosage: 25/100 MG, 1 TAB, QHS
     Route: 048
     Dates: start: 201207
  37. TRAZODONE [Concomitant]
     Indication: INSOMNIA
     Dosage: 50 MG, UNK
     Route: 048
     Dates: start: 20120322, end: 20120619
  38. TRAZODONE [Concomitant]
     Dosage: 75 MG, UNK
     Route: 048
     Dates: start: 20120619
  39. EXELON [Concomitant]
     Indication: PARKINSON^S DISEASE
     Dosage: 9.5 UNK, UNK
     Route: 062
  40. KLONOPIN [Concomitant]
     Indication: RESTLESS LEGS SYNDROME
     Dosage: 0.5 MG, UNK
     Route: 048
     Dates: start: 20120622
  41. ERYTHROMYCIN [Concomitant]
     Indication: PROPHYLAXIS

REACTIONS (2)
  - Gastrooesophageal reflux disease [Recovered/Resolved with Sequelae]
  - Non-cardiac chest pain [Recovered/Resolved]
